FAERS Safety Report 15260534 (Version 1)
Quarter: 2018Q3

REPORT INFORMATION
  Report Type: Spontaneous
  Country: US (occurrence: US)
  Receive Date: 20180719
  Receipt Date: 20180719
  Transmission Date: 20181010
  Serious: Yes (Hospitalization)
  Sender: FDA-Public Use
  Company Number: None

PATIENT
  Age: 74 Year
  Sex: Male
  Weight: 80.74 kg

DRUGS (2)
  1. DOXORUBICIN [Suspect]
     Active Substance: DOXORUBICIN
     Indication: BLADDER CANCER
     Route: 042
     Dates: start: 20180314, end: 20180314
  2. VINBLASTINE [Suspect]
     Active Substance: VINBLASTINE
     Indication: BLADDER CANCER
     Route: 042
     Dates: start: 20180314, end: 20180314

REACTIONS (2)
  - Mucosal inflammation [None]
  - Sepsis [None]

NARRATIVE: CASE EVENT DATE: 20180318
